FAERS Safety Report 9156158 (Version 2)
Quarter: 2013Q3

REPORT INFORMATION
  Report Type: Report from Study
  Country: JP (occurrence: JP)
  Receive Date: 20130311
  Receipt Date: 20130725
  Transmission Date: 20140515
  Serious: Yes (Death, Other)
  Sender: FDA-Public Use
  Company Number: JP-OTSUKA-JP-2013-10596

PATIENT
  Age: 76 Year
  Sex: Female
  Weight: 35.7 kg

DRUGS (6)
  1. SAMSCA [Suspect]
     Indication: FLUID RETENTION
     Dosage: 7.5 MG MILLIGRAM(S), QAM
     Route: 048
     Dates: start: 20120802, end: 20120910
  2. LUPRAC [Concomitant]
     Indication: CARDIAC FAILURE
     Dosage: 4 MG MILLIGRAM(S), DAILY DOSE
     Route: 048
     Dates: end: 20120910
  3. MEVALOTIN [Concomitant]
     Dosage: 10 MG MILLIGRAM(S), DAILY DOSE
     Route: 048
     Dates: end: 20120910
  4. DORNER [Concomitant]
     Dosage: 120 MCG, DAILY DOSE
     Route: 048
     Dates: end: 20120910
  5. PREDNISOLONE [Concomitant]
     Dosage: 10 MG MILLIGRAM(S), DAILY DOSE
     Route: 048
     Dates: end: 20120910
  6. GASTER D [Concomitant]
     Indication: PROPHYLAXIS
     Dosage: 10 MG MILLIGRAM(S), DAILY DOSE
     Route: 048
     Dates: end: 20120910

REACTIONS (2)
  - Cardiac failure [Fatal]
  - Infection [Unknown]
